FAERS Safety Report 23377107 (Version 1)
Quarter: 2024Q1

REPORT INFORMATION
  Report Type: Spontaneous
  Country: US (occurrence: US)
  Receive Date: 20240108
  Receipt Date: 20240108
  Transmission Date: 20240409
  Serious: No
  Sender: FDA-Public Use
  Company Number: US-BRISTOL-MYERS SQUIBB COMPANY-2024-002579

PATIENT
  Age: 20 Year
  Sex: Female

DRUGS (3)
  1. ORENCIA [Suspect]
     Active Substance: ABATACEPT
     Indication: Rheumatoid arthritis
     Route: 058
     Dates: start: 202311
  2. ORENCIA [Suspect]
     Active Substance: ABATACEPT
     Indication: Still^s disease
  3. ORENCIA [Suspect]
     Active Substance: ABATACEPT
     Indication: Polyarthritis

REACTIONS (4)
  - Nausea [Unknown]
  - Dizziness [Unknown]
  - Chest discomfort [Unknown]
  - Lethargy [Unknown]
